FAERS Safety Report 7084219-X (Version None)
Quarter: 2010Q4

REPORT INFORMATION
  Report Type: 
  Country: None (occurrence: None)
  Receive Date: 20101104
  Receipt Date: 20101027
  Transmission Date: 20110411
  Serious: Yes (Hospitalization)
  Sender: FDA-Public Use
  Company Number: GXKR2010GB12104

PATIENT
  Age: 27 Year
  Sex: Male
  Weight: 65 kg

DRUGS (2)
  1. DICLOFENAC (NGX) [Suspect]
     Indication: MUSCULOSKELETAL PAIN
     Dosage: 75 MG, BID
     Route: 048
     Dates: start: 20101007, end: 20101012
  2. CO-CODAMOL [Concomitant]
     Route: 065

REACTIONS (1)
  - HYPONATRAEMIA [None]
